FAERS Safety Report 7080316-3 (Version None)
Quarter: 2010Q4

REPORT INFORMATION
  Report Type: 
  Country: None (occurrence: None)
  Receive Date: 20101022
  Receipt Date: 20101007
  Transmission Date: 20110411
  Serious: Yes (Death)
  Sender: FDA-Public Use
  Company Number: 011481

PATIENT
  Age: 11 Year
  Sex: Female

DRUGS (5)
  1. BUSULFEX [Suspect]
     Indication: STEM CELL TRANSPLANT
  2. CYCLOPHOSPHAMIDE [Concomitant]
  3. CYCLOSPORINE [Concomitant]
  4. PREDNISONE [Concomitant]
  5. METHOTREXATE [Concomitant]

REACTIONS (2)
  - ACUTE GRAFT VERSUS HOST DISEASE IN INTESTINE [None]
  - PNEUMONITIS [None]
